FAERS Safety Report 13235542 (Version 1)
Quarter: 2017Q1

REPORT INFORMATION
  Report Type: Report from Study
  Country: IT (occurrence: IT)
  Receive Date: 20170215
  Receipt Date: 20170215
  Transmission Date: 20170428
  Serious: Yes (Death)
  Sender: FDA-Public Use
  Company Number: IT-TEVA-738948ISR

PATIENT

DRUGS (5)
  1. MESNA. [Concomitant]
     Active Substance: MESNA
     Route: 040
  2. CISPLATIN. [Suspect]
     Active Substance: CISPLATIN
     Indication: SMALL CELL LUNG CANCER
     Dosage: 20 MG/M2 INFUSED IN 30 MINUTE, ON DAYS 1 TO 4
     Route: 041
  3. DEXAMETHASONE. [Concomitant]
     Active Substance: DEXAMETHASONE
     Indication: PROPHYLAXIS OF NAUSEA AND VOMITING
  4. IFOSFAMIDE. [Suspect]
     Active Substance: IFOSFAMIDE
     Indication: SMALL CELL LUNG CANCER
     Dosage: 1200 MG/M2 , INFUSED OVER AN HOUR, ON DAYS 1 TO 4
     Route: 041
  5. ETOPOSIDE. [Suspect]
     Active Substance: ETOPOSIDE
     Indication: SMALL CELL LUNG CANCER
     Dosage: 75 MG/M2 , INFUSED OVER AN HOUR, ON DAYS 1 TO 4
     Route: 041

REACTIONS (1)
  - Cardiac failure [Fatal]
